FAERS Safety Report 11595486 (Version 1)
Quarter: 2015Q4

REPORT INFORMATION
  Report Type: Spontaneous
  Country: FR (occurrence: FR)
  Receive Date: 20151006
  Receipt Date: 20151006
  Transmission Date: 20160304
  Serious: Yes (Hospitalization)
  Sender: FDA-Public Use
  Company Number: FR-ROCHE-1641535

PATIENT
  Age: 55 Year
  Sex: Male

DRUGS (15)
  1. CYMBALTA [Concomitant]
     Active Substance: DULOXETINE HYDROCHLORIDE
     Dosage: 2 DOSES IN THE MORNING, 1 DOSE IN THE EVENING
     Route: 065
  2. BELATACEPT [Concomitant]
     Active Substance: BELATACEPT
     Route: 065
     Dates: start: 20150722, end: 20150902
  3. LANTUS [Concomitant]
     Active Substance: INSULIN GLARGINE
     Dosage: IN THE MORNING AND IN THE EVENING
     Route: 065
  4. ROVALCYTE [Suspect]
     Active Substance: VALGANCICLOVIR HYDROCHLORIDE
     Indication: PRODUCT USED FOR UNKNOWN INDICATION
     Dosage: 450 MG ON MONDAYS AND THURSDAYS
     Route: 048
     Dates: start: 20150702, end: 20150915
  5. DOLIPRANE [Concomitant]
     Active Substance: ACETAMINOPHEN
     Dosage: IF NEEDED
     Route: 065
  6. FERO-GRAD [Concomitant]
     Dosage: 1 TABLET IN THE MORNING AND IN THE EVENING DURING 4 MONTHS.
     Route: 065
  7. CELLCEPT [Suspect]
     Active Substance: MYCOPHENOLATE MOFETIL\MYCOPHENOLATE MOFETIL HYDROCHLORIDE
     Indication: RENAL TRANSPLANT
     Dosage: 500 MG IN THE MORNING, LUNCH TIME AND EVENING
     Route: 048
     Dates: start: 20150723, end: 20150915
  8. AMLOR [Concomitant]
     Active Substance: AMLODIPINE BESYLATE
     Dosage: 10 AT 1 DOSE IN THE MORNING
     Route: 065
  9. BACTRIM [Suspect]
     Active Substance: SULFAMETHOXAZOLE\TRIMETHOPRIM
     Indication: PRODUCT USED FOR UNKNOWN INDICATION
     Dosage: ON MONDAY, WEDNESDAY, FRIDAY
     Route: 048
     Dates: start: 20150615, end: 20150915
  10. LASILIX SPECIAL [Concomitant]
     Active Substance: FUROSEMIDE
     Dosage: 1 DOSE IN THE MORNING
     Route: 065
  11. NOVORAPID [Concomitant]
     Active Substance: INSULIN ASPART
     Dosage: IN THE MORNING AND IN?THE EVENING AND 12 IU AT LUNCH TIME
     Route: 065
  12. NULOJIX [Suspect]
     Active Substance: BELATACEPT
     Indication: RENAL TRANSPLANT
     Route: 042
     Dates: start: 20150722, end: 20150902
  13. INEXIUM [Concomitant]
     Active Substance: ESOMEPRAZOLE
     Dosage: 30 MG AT 1 DOSE IN THE MORNING AND 2 DOSES IN THE EVENING
     Route: 048
     Dates: end: 20150915
  14. ARANESP [Concomitant]
     Active Substance: DARBEPOETIN ALFA
     Dosage: 80 MICROME, 1 INJECTION EVERY MONDAY
     Route: 058
  15. IMOVANE [Concomitant]
     Active Substance: ZOPICLONE
     Indication: INSOMNIA
     Dosage: IN THE EVENING
     Route: 065

REACTIONS (1)
  - Agranulocytosis [Recovered/Resolved]

NARRATIVE: CASE EVENT DATE: 20150915
